FAERS Safety Report 4971375-X (Version None)
Quarter: 2006Q2

REPORT INFORMATION
  Report Type: 
  Country: None (occurrence: None)
  Receive Date: 20060406
  Receipt Date: 20060330
  Transmission Date: 20061013
  Serious: Yes (Hospitalization)
  Sender: FDA-Public Use
  Company Number: 200610444BYL

PATIENT
  Age: 71 Year
  Sex: Female
  Weight: 71 kg

DRUGS (5)
  1. AVELOX [Suspect]
     Indication: LARYNGOPHARYNGITIS
     Dosage: 400 MG, QD, ORAL
     Route: 048
     Dates: start: 20060217, end: 20060219
  2. LANTUS [Concomitant]
  3. HUMALOG [Concomitant]
  4. MUCOSOLVAN [Concomitant]
  5. PL GRAN. [Concomitant]

REACTIONS (1)
  - DIABETES MELLITUS [None]
